FAERS Safety Report 10133608 (Version 5)
Quarter: 2015Q1

REPORT INFORMATION
  Report Type: Spontaneous
  Country: JP (occurrence: JP)
  Receive Date: 20140428
  Receipt Date: 20150209
  Transmission Date: 20150720
  Serious: No
  Sender: FDA-Public Use
  Company Number: JP-GLAXOSMITHKLINE-B0985206A

PATIENT
  Age: 3 Year
  Sex: Female

DRUGS (13)
  1. TEGRETOL [Suspect]
     Active Substance: CARBAMAZEPINE
     Dosage: UNK MG, UNK
     Route: 048
     Dates: start: 20140322, end: 20140326
  2. LAMOTRIGINE. [Suspect]
     Active Substance: LAMOTRIGINE
     Indication: EPILEPSY
     Dosage: 2 MG, BID
     Route: 048
     Dates: start: 20140128, end: 201402
  3. L-CARTIN FF [Concomitant]
     Indication: HYPOCARNITINAEMIA
     Dosage: 100 MG, TID
  4. PULMICORT TURBUHALER [Concomitant]
     Active Substance: BUDESONIDE
  5. HOKUNALIN:TAPE [Concomitant]
     Active Substance: TULOBUTEROL
     Dosage: 0.5 MG, QD
  6. LAMOTRIGINE. [Suspect]
     Active Substance: LAMOTRIGINE
     Route: 048
     Dates: start: 201402, end: 20140219
  7. ONON DRYSYRUP [Concomitant]
     Indication: ASTHMA PROPHYLAXIS
     Dosage: 25 MG, BID
  8. MUCODYNE [Concomitant]
     Active Substance: CARBOCYSTEINE
     Indication: ASTHMA PROPHYLAXIS
     Dosage: 100 MG, BID
  9. TEGRETOL [Suspect]
     Active Substance: CARBAMAZEPINE
     Indication: EPILEPSY
     Dosage: 37.5 MG, BID
     Route: 048
     Dates: end: 20140316
  10. TEGRETOL [Suspect]
     Active Substance: CARBAMAZEPINE
     Dosage: UNK MG, UNK
     Route: 048
     Dates: start: 20140317, end: 20140321
  11. FUROSEMIDE. [Concomitant]
     Active Substance: FUROSEMIDE
     Indication: CARDIOVASCULAR EVENT PROPHYLAXIS
     Dosage: 1 MG, BID
     Dates: end: 20140409
  12. ALDACTONE [Concomitant]
     Active Substance: SPIRONOLACTONE
     Indication: CARDIOVASCULAR EVENT PROPHYLAXIS
     Dosage: 4 MG, BID
     Dates: end: 20140409
  13. GASTER [Concomitant]
     Active Substance: FAMOTIDINE
     Indication: HAEMORRHAGE PROPHYLAXIS
     Dosage: 5 MG, BID

REACTIONS (6)
  - Rash [Recovered/Resolved]
  - Pyrexia [Recovered/Resolved]
  - Pyrexia [Recovered/Resolved]
  - Rash [Recovered/Resolved]
  - Drug eruption [Recovered/Resolved]
  - Lip swelling [Recovered/Resolved]

NARRATIVE: CASE EVENT DATE: 20140201
